FAERS Safety Report 4736278-4 (Version None)
Quarter: 2005Q3

REPORT INFORMATION
  Report Type: 
  Country: None (occurrence: None)
  Receive Date: 20050805
  Receipt Date: 20050805
  Transmission Date: 20060218
  Serious: Yes (Other)
  Sender: FDA-Public Use
  Company Number: None

PATIENT
  Age: 58 Year
  Sex: Male
  Weight: 65.7716 kg

DRUGS (1)
  1. REMERON [Suspect]
     Indication: MAJOR DEPRESSION
     Dosage: 30 MG HS PO
     Route: 048
     Dates: start: 20050728, end: 20050803

REACTIONS (3)
  - DIARRHOEA [None]
  - HEADACHE [None]
  - PHARMACEUTICAL PRODUCT COMPLAINT [None]
